FAERS Safety Report 8090790-1 (Version None)
Quarter: 2012Q1

REPORT INFORMATION
  Report Type: 
  Country: None (occurrence: None)
  Receive Date: 20120125
  Receipt Date: 20120103
  Transmission Date: 20120608
  Serious: Yes (Other)
  Sender: FDA-Public Use
  Company Number: 2012-00012

PATIENT
  Age: 47 Year
  Sex: Male

DRUGS (5)
  1. LOSARTAN POTASSIUM [Suspect]
     Indication: HYPERTENSION
     Dosage: DOSE: 300MG
  2. INSULIN DETEMIR (UNKNOWN) [Concomitant]
  3. SIMVASTATIN [Concomitant]
  4. METFORMIN HYDROCHLORIDE [Concomitant]
  5. INSULIN ASPART (NOVORAPID) (UNKNOWN) [Concomitant]

REACTIONS (3)
  - RASH ERYTHEMATOUS [None]
  - DERMATITIS ALLERGIC [None]
  - PRODUCT SUBSTITUTION ISSUE [None]
